FAERS Safety Report 10041026 (Version 2)
Quarter: 2014Q2

REPORT INFORMATION
  Report Type: Spontaneous
  Country: JP (occurrence: JP)
  Receive Date: 20140327
  Receipt Date: 20140418
  Transmission Date: 20141212
  Serious: Yes (Other)
  Sender: FDA-Public Use
  Company Number: JP-ASTRAZENECA-2014SE20537

PATIENT
  Age: 14 Year
  Sex: Male

DRUGS (1)
  1. MEROPEN [Suspect]
     Route: 042

REACTIONS (3)
  - Aplasia pure red cell [Unknown]
  - Cytokine storm [Unknown]
  - Histiocytosis haematophagic [Unknown]
